FAERS Safety Report 24899592 (Version 1)
Quarter: 2025Q1

REPORT INFORMATION
  Report Type: Spontaneous
  Country: US (occurrence: None)
  Receive Date: 20250128
  Receipt Date: 20250128
  Transmission Date: 20250409
  Serious: Yes (Hospitalization)
  Sender: FDA-CTU
  Company Number: None

PATIENT
  Sex: Male
  Weight: 57.6 kg

DRUGS (18)
  1. TACROLIMUS [Suspect]
     Active Substance: TACROLIMUS
     Indication: Liver transplant
     Dosage: OTHER FREQUENCY : 3 QAM AND 2 QPM;?
     Route: 048
     Dates: end: 20250114
  2. ELIQUIS [Concomitant]
     Active Substance: APIXABAN
  3. PREDNISONE [Concomitant]
     Active Substance: PREDNISONE
  4. MYCOPHENOLATE MOFETIL [Concomitant]
     Active Substance: MYCOPHENOLATE MOFETIL
  5. SENNA [Concomitant]
     Active Substance: SENNOSIDES
  6. FLUCONAZOLE [Concomitant]
     Active Substance: FLUCONAZOLE
  7. CALCIUM\VITAMIN D [Concomitant]
     Active Substance: CALCIUM\VITAMIN D
  8. BACTRIM [Concomitant]
     Active Substance: SULFAMETHOXAZOLE\TRIMETHOPRIM
  9. ACETAMINOPHEN [Concomitant]
     Active Substance: ACETAMINOPHEN
  10. PANTOPRAZOLE [Concomitant]
     Active Substance: PANTOPRAZOLE
  11. ADMELOG [Concomitant]
     Active Substance: INSULIN LISPRO
  12. MELATONIN [Concomitant]
     Active Substance: MELATONIN
  13. LANTUS [Concomitant]
     Active Substance: INSULIN GLARGINE
  14. ASPIRIN [Concomitant]
     Active Substance: ASPIRIN
  15. TAMSULOSIN [Concomitant]
     Active Substance: TAMSULOSIN
  16. VALGANCICLOVIR [Concomitant]
     Active Substance: VALGANCICLOVIR
  17. MAGNESIUM OXIDE [Concomitant]
     Active Substance: MAGNESIUM OXIDE
  18. URSODIOL [Concomitant]
     Active Substance: URSODIOL

REACTIONS (2)
  - Depression [None]
  - Suicidal ideation [None]
